FAERS Safety Report 5313023-5 (Version None)
Quarter: 2007Q2

REPORT INFORMATION
  Report Type: 
  Country: None (occurrence: None)
  Receive Date: 20070430
  Receipt Date: 20070409
  Transmission Date: 20071010
  Serious: No
  Sender: FDA-Public Use
  Company Number: JP-PFIZER INC-2007022502

PATIENT
  Sex: Male

DRUGS (1)
  1. CETIRIZINE HCL [Suspect]
     Indication: RHINITIS ALLERGIC
     Dosage: DAILY DOSE:10MG
     Route: 048
     Dates: start: 20070309, end: 20070313

REACTIONS (4)
  - DISCOMFORT [None]
  - FALL [None]
  - MALAISE [None]
  - SOMNOLENCE [None]
